FAERS Safety Report 6637665-X (Version None)
Quarter: 2010Q1

REPORT INFORMATION
  Report Type: 
  Country: None (occurrence: None)
  Receive Date: 20100317
  Receipt Date: 20100302
  Transmission Date: 20100710
  Serious: Yes (Hospitalization, Other)
  Sender: FDA-Public Use
  Company Number: US-TYCO HEALTHCARE/MALLINCKRODT-T201000710

PATIENT
  Age: 39 Year
  Sex: Male

DRUGS (1)
  1. FENTANYL [Suspect]
     Indication: BACK PAIN
     Dosage: 2700 UG/DAY
     Route: 037

REACTIONS (7)
  - ABASIA [None]
  - CONSTIPATION [None]
  - FOREIGN BODY REACTION [None]
  - MUSCULAR WEAKNESS [None]
  - PAIN [None]
  - STAPHYLOCOCCAL INFECTION [None]
  - URINARY RETENTION [None]
